FAERS Safety Report 12945497 (Version 1)
Quarter: 2016Q4

REPORT INFORMATION
  Report Type: Spontaneous
  Country: US (occurrence: US)
  Receive Date: 20161116
  Receipt Date: 20161116
  Transmission Date: 20170207
  Serious: No
  Sender: FDA-Public Use
  Company Number: US-JNJFOC-20161010649

PATIENT
  Sex: Female
  Weight: 79.38 kg

DRUGS (4)
  1. WOMENS ROGAINE [Suspect]
     Active Substance: MINOXIDIL
     Indication: ALOPECIA
     Dosage: HAIF A CAPFUL
     Route: 061
  2. FISH OIL [Concomitant]
     Active Substance: FISH OIL
     Indication: PRODUCT USED FOR UNKNOWN INDICATION
     Dosage: 5-6 YEARS
     Route: 065
  3. WOMENS ROGAINE [Suspect]
     Active Substance: MINOXIDIL
     Route: 061
  4. VITAMIN D [Concomitant]
     Active Substance: CHOLECALCIFEROL
     Indication: PRODUCT USED FOR UNKNOWN INDICATION
     Dosage: 5-6 YEARS
     Route: 065

REACTIONS (2)
  - Drug ineffective [Unknown]
  - Drug administration error [Unknown]
